FAERS Safety Report 4291236-1 (Version None)
Quarter: 2004Q1

REPORT INFORMATION
  Report Type: 
  Country: None (occurrence: None)
  Receive Date: 20040209
  Receipt Date: 20040127
  Transmission Date: 20041129
  Serious: Yes (Hospitalization, Other)
  Sender: FDA-Public Use
  Company Number: 2004006135

PATIENT
  Age: 52 Year
  Sex: Female
  Weight: 63.5036 kg

DRUGS (12)
  1. ZARONTIN [Suspect]
     Indication: EPILEPSY
     Dosage: 250 MG (DAILY), ORAL
     Route: 048
     Dates: start: 19960101
  2. ZOLOFT [Concomitant]
  3. PROPRANOLOL [Concomitant]
  4. HYDROXYZINE ENBONATE (HYDROXYZINE EMBONATE) [Concomitant]
  5. CLINIDIUM BROMIDE (CLINIDIUM BROMIDE) [Concomitant]
  6. CELERY SEED EXTRACT (CELERY SEED EXTRACT) [Concomitant]
  7. CARBAMAZEPINE [Concomitant]
  8. CONJUGATED ESTROGENS [Concomitant]
  9. METOPROLOL SUCCINATE [Concomitant]
  10. GLICLAZIDE (GLICLAZIDE) [Concomitant]
  11. ACETYLSALICYLIC ACID SRT [Concomitant]
  12. MECLOZINE (MECLOZNE) [Concomitant]

REACTIONS (7)
  - BLOOD PRESSURE ABNORMAL [None]
  - DIABETES MELLITUS [None]
  - DIZZINESS [None]
  - HYPERHIDROSIS [None]
  - IMPAIRED WORK ABILITY [None]
  - MIGRAINE [None]
  - VOMITING [None]
